FAERS Safety Report 12178414 (Version 1)
Quarter: 2016Q1

REPORT INFORMATION
  Report Type: Spontaneous
  Country: US (occurrence: None)
  Receive Date: 20160314
  Receipt Date: 20160314
  Transmission Date: 20160526
  Serious: Yes (Other)
  Sender: FDA-Public Use
  Company Number: None

PATIENT
  Age: 57 Year
  Sex: Male

DRUGS (1)
  1. VOTRIENT [Suspect]
     Active Substance: PAZOPANIB HYDROCHLORIDE
     Indication: RENAL CANCER
     Dosage: AND STILL TAKING AS OF
     Route: 048
     Dates: start: 20151228

REACTIONS (8)
  - Dyspepsia [None]
  - Diarrhoea [None]
  - Pruritus [None]
  - Rash [None]
  - Drug dose omission [None]
  - Headache [None]
  - Blood pressure increased [None]
  - Fatigue [None]
